FAERS Safety Report 7723237-2 (Version None)
Quarter: 2011Q3

REPORT INFORMATION
  Report Type: 
  Country: None (occurrence: None)
  Receive Date: 20110901
  Receipt Date: 20110820
  Transmission Date: 20111222
  Serious: No
  Sender: FDA-Public Use
  Company Number: US-B.I. PHARMACEUTICALS,INC./RIDGEFIELD-2011-BP-20466BP

PATIENT
  Sex: Male

DRUGS (2)
  1. PRADAXA [Suspect]
     Dates: start: 20110816
  2. LANTUS [Concomitant]
     Indication: DIABETES MELLITUS

REACTIONS (1)
  - BLOOD GLUCOSE INCREASED [None]
